FAERS Safety Report 25392508 (Version 1)
Quarter: 2025Q2

REPORT INFORMATION
  Report Type: Spontaneous
  Country: US (occurrence: US)
  Receive Date: 20250603
  Receipt Date: 20250603
  Transmission Date: 20250716
  Serious: No
  Sender: SANOFI AVENTIS
  Company Number: US-SA-2025SA156646

PATIENT
  Age: 40 Year
  Sex: Male

DRUGS (1)
  1. TZIELD [Suspect]
     Active Substance: TEPLIZUMAB-MZWV
     Dosage: 2029 UG, QD

REACTIONS (3)
  - Sleep disorder due to a general medical condition [Unknown]
  - Rash pruritic [Recovering/Resolving]
  - Nausea [Unknown]
